FAERS Safety Report 24187147 (Version 2)
Quarter: 2024Q3

REPORT INFORMATION
  Report Type: Report from Study
  Country: CL (occurrence: CL)
  Receive Date: 20240808
  Receipt Date: 20240812
  Transmission Date: 20241017
  Serious: Yes (Death, Other)
  Sender: UCB
  Company Number: CO-UCBSA-2024039678

PATIENT
  Age: 78 Year
  Sex: Male
  Weight: 82 kg

DRUGS (1)
  1. ROTIGOTINE [Suspect]
     Active Substance: ROTIGOTINE
     Indication: Parkinson^s disease
     Dosage: 8 MILLIGRAM, ONCE DAILY (QD)
     Route: 062
     Dates: start: 20220301, end: 20240419

REACTIONS (4)
  - Death [Fatal]
  - Prostate cancer metastatic [Unknown]
  - Volvulus [Unknown]
  - Metastases to bone [Unknown]

NARRATIVE: CASE EVENT DATE: 20240201
